FAERS Safety Report 4502793-1 (Version None)
Quarter: 2004Q4

REPORT INFORMATION
  Report Type: 
  Country: None (occurrence: None)
  Receive Date: 20041117
  Receipt Date: 20041105
  Transmission Date: 20050328
  Serious: Yes (Death, Hospitalization)
  Sender: FDA-Public Use
  Company Number: FR-JNJFOC-20041102316

PATIENT
  Age: 58 Year
  Sex: Male

DRUGS (4)
  1. REOPRO [Suspect]
     Indication: MYOCARDIAL INFARCTION
     Route: 042
  2. HEPARIN [Suspect]
     Indication: MYOCARDIAL INFARCTION
     Route: 042
  3. METALYSE [Suspect]
     Indication: MYOCARDIAL INFARCTION
     Route: 049
  4. ASPEGIC 325 [Suspect]
     Indication: MYOCARDIAL INFARCTION
     Route: 042

REACTIONS (4)
  - CARDIO-RESPIRATORY ARREST [None]
  - HAEMODYNAMIC INSTABILITY [None]
  - HAEMOTHORAX [None]
  - PULMONARY HAEMORRHAGE [None]
